FAERS Safety Report 4301250-5 (Version None)
Quarter: 2004Q1

REPORT INFORMATION
  Report Type: 
  Country: None (occurrence: None)
  Receive Date: 20040220
  Receipt Date: 20040220
  Transmission Date: 20041129
  Serious: Yes (Disabling)
  Sender: FDA-Public Use
  Company Number: None

PATIENT
  Age: 49 Year
  Sex: Male
  Weight: 79.3795 kg

DRUGS (1)
  1. LEVAQUIN [Suspect]
     Indication: TENDON RUPTURE
     Dosage: 1-2 PER DAY/ 7 MONTHS
     Dates: start: 20020201, end: 20020901

REACTIONS (5)
  - CONSTIPATION [None]
  - DIFFICULTY IN WALKING [None]
  - PAIN [None]
  - PROCTALGIA [None]
  - TENDON RUPTURE [None]
